FAERS Safety Report 22031191 (Version 3)
Quarter: 2024Q1

REPORT INFORMATION
  Report Type: Spontaneous
  Country: US (occurrence: US)
  Receive Date: 20230223
  Receipt Date: 20240221
  Transmission Date: 20240409
  Serious: No
  Sender: FDA-Public Use
  Company Number: US-ELI_LILLY_AND_COMPANY-US202302011526

PATIENT
  Age: 56 Year
  Sex: Female

DRUGS (10)
  1. MOUNJARO [Suspect]
     Active Substance: TIRZEPATIDE
     Indication: Type 2 diabetes mellitus
     Dosage: 7.5 MG, UNKNOWN
     Route: 065
     Dates: start: 20221130
  2. MOUNJARO [Suspect]
     Active Substance: TIRZEPATIDE
     Indication: Type 2 diabetes mellitus
     Dosage: 7.5 MG, UNKNOWN
     Route: 065
     Dates: start: 20221130
  3. MOUNJARO [Suspect]
     Active Substance: TIRZEPATIDE
     Indication: Type 2 diabetes mellitus
     Dosage: 7.5 MG, UNKNOWN
     Route: 065
     Dates: start: 20221130
  4. MOUNJARO [Suspect]
     Active Substance: TIRZEPATIDE
     Indication: Type 2 diabetes mellitus
     Dosage: 7.5 MG, UNKNOWN
     Route: 065
     Dates: start: 20221130
  5. MOUNJARO [Suspect]
     Active Substance: TIRZEPATIDE
     Indication: Type 2 diabetes mellitus
     Dosage: 7.5 MG, UNKNOWN
     Route: 065
     Dates: start: 20221130
  6. MOUNJARO [Suspect]
     Active Substance: TIRZEPATIDE
     Indication: Type 2 diabetes mellitus
     Dosage: 7.5 MG, UNKNOWN
     Route: 065
     Dates: start: 20221130
  7. LISINOPRIL [Concomitant]
     Active Substance: LISINOPRIL
     Indication: Blood cholesterol
     Dosage: 5 MG, DAILY
     Route: 065
  8. VENLAFAXINE [Concomitant]
     Active Substance: VENLAFAXINE HYDROCHLORIDE
     Indication: Depression
  9. TUMS PLUS [Concomitant]
     Indication: Eructation
     Dosage: PRN
  10. TUMS PLUS [Concomitant]
     Indication: Gastrooesophageal reflux disease

REACTIONS (4)
  - Illness [Recovered/Resolved]
  - Feeling cold [Unknown]
  - Constipation [Recovered/Resolved]
  - Nausea [Recovered/Resolved]
